FAERS Safety Report 9564947 (Version 1)
Quarter: 2013Q3

REPORT INFORMATION
  Report Type: Spontaneous
  Country: FR (occurrence: FR)
  Receive Date: 20130930
  Receipt Date: 20130930
  Transmission Date: 20140515
  Serious: Yes (Other)
  Sender: FDA-Public Use
  Company Number: PHHY2013FR107698

PATIENT
  Age: 33 Year
  Sex: Female

DRUGS (6)
  1. MYFORTIC [Suspect]
     Indication: IMMUNOSUPPRESSION
     Dosage: 360 MG, TID (3 DF DAILY)
     Route: 048
     Dates: start: 2007
  2. PROGRAF [Suspect]
     Indication: IMMUNOSUPPRESSION
     Dosage: 5 MG, QD
     Route: 048
  3. CORTICOSTEROIDS [Concomitant]
     Dosage: UNK
  4. CANDESARTAN [Concomitant]
     Dosage: 8 MG, DAILY
     Dates: start: 2010
  5. ZINNAT [Concomitant]
     Dosage: UNK
     Dates: start: 2010
  6. OGASTORO [Concomitant]
     Dosage: 15 MG, QD
     Dates: start: 2010

REACTIONS (4)
  - Depression [Not Recovered/Not Resolved]
  - Tearfulness [Unknown]
  - Irritability [Not Recovered/Not Resolved]
  - Mood altered [Not Recovered/Not Resolved]
